FAERS Safety Report 6107590-1 (Version None)
Quarter: 2009Q1

REPORT INFORMATION
  Report Type: 
  Country: None (occurrence: None)
  Receive Date: 20090309
  Receipt Date: 20090305
  Transmission Date: 20090719
  Serious: Yes (Life-Threatening)
  Sender: FDA-Public Use
  Company Number: JP-BRISTOL-MYERS SQUIBB COMPANY-14509046

PATIENT
  Age: 66 Year
  Sex: Male
  Weight: 48 kg

DRUGS (10)
  1. ERBITUX [Suspect]
     Indication: COLORECTAL CANCER RECURRENT
     Dosage: INFUSIONNF:1ST-(400MG/M2)18-NOV-2008; 2ND:(250MG/M2)25-NOV-2008;3RD:02DEC08,4TH:09DEC08
     Route: 042
     Dates: start: 20081118, end: 20081118
  2. POLARAMINE [Concomitant]
     Indication: COLORECTAL CANCER RECURRENT
     Route: 042
  3. POLARAMINE [Concomitant]
     Indication: PREMEDICATION
     Route: 042
  4. DECADRON [Concomitant]
     Indication: PREMEDICATION
     Route: 042
     Dates: start: 20081118
  5. OXYCONTIN [Concomitant]
     Indication: CANCER PAIN
     Dosage: TABLET. INCREASED TO 240 MG.
     Route: 048
     Dates: start: 20080424
  6. HYPEN [Concomitant]
     Indication: CANCER PAIN
     Dosage: TABLET
     Route: 048
     Dates: start: 20080416
  7. RHYTHMY [Concomitant]
     Indication: INSOMNIA
     Dosage: TABLET
     Route: 048
     Dates: start: 20080819
  8. MAGMITT [Concomitant]
     Dosage: TABLET
     Route: 048
  9. FERROMIA [Concomitant]
     Indication: ANAEMIA
     Dosage: TABLET
     Route: 048
     Dates: start: 20080416
  10. CYANOCOBALAMIN [Concomitant]
     Dosage: TABLET
     Route: 048

REACTIONS (1)
  - DISORIENTATION [None]
